FAERS Safety Report 5427122-0 (Version None)
Quarter: 2007Q3

REPORT INFORMATION
  Report Type: 
  Country: None (occurrence: None)
  Receive Date: 20070828
  Receipt Date: 20070820
  Transmission Date: 20080115
  Serious: Yes (Hospitalization)
  Sender: FDA-Public Use
  Company Number: PHBS2007CN13381

PATIENT

DRUGS (2)
  1. VOLTAREN [Suspect]
     Indication: BACK PAIN
     Dosage: 75 MG/D
     Route: 048
     Dates: start: 20070727, end: 20070729
  2. CHLORZOXAZONE [Suspect]
     Indication: PAIN
     Dosage: UNK, UNK
     Dates: start: 20070727

REACTIONS (7)
  - ARTHRALGIA [None]
  - ASTHENIA [None]
  - COMA [None]
  - ERYTHEMA [None]
  - GENERALISED OEDEMA [None]
  - RASH GENERALISED [None]
  - TRANSAMINASES INCREASED [None]
